FAERS Safety Report 14860259 (Version 2)
Quarter: 2019Q3

REPORT INFORMATION
  Report Type: Report from Study
  Country: DE (occurrence: DE)
  Receive Date: 20180508
  Receipt Date: 20190906
  Transmission Date: 20191004
  Serious: Yes (Hospitalization, Other)
  Sender: FDA-Public Use
  Company Number: DE-ACCORD-066583

PATIENT
  Age: 79 Year
  Sex: Female
  Weight: 67 kg

DRUGS (20)
  1. PANTOZOL [Concomitant]
     Active Substance: PANTOPRAZOLE SODIUM
     Indication: PROPHYLAXIS
     Route: 048
  2. OXALIPLATIN. [Suspect]
     Active Substance: OXALIPLATIN
     Indication: COLORECTAL CANCER METASTATIC
     Dosage: 146.2 - 110 MG
     Dates: start: 20130502, end: 20130516
  3. FLUOROURACIL. [Suspect]
     Active Substance: FLUOROURACIL
     Indication: COLORECTAL CANCER METASTATIC
     Route: 042
     Dates: start: 20130502, end: 20130504
  4. XELODA [Suspect]
     Active Substance: CAPECITABINE
     Dosage: ON DAYS 1-14 OF 3 WEEK CYCLE
  5. BISOPROLOL [Concomitant]
     Active Substance: BISOPROLOL
     Indication: HYPERTENSION
     Route: 065
  6. ACETYLSALICYLIC ACID [Concomitant]
     Active Substance: ASPIRIN
     Route: 065
     Dates: start: 201307, end: 201308
  7. AVASTIN [Suspect]
     Active Substance: BEVACIZUMAB
     Indication: COLORECTAL CANCER METASTATIC
  8. MONO-EMBOLEX [Concomitant]
     Active Substance: CERTOPARIN SODIUM
     Indication: THROMBOSIS PROPHYLAXIS
     Route: 058
     Dates: start: 201304, end: 20130620
  9. XELODA [Suspect]
     Active Substance: CAPECITABINE
     Indication: COLORECTAL CANCER METASTATIC
     Dosage: ON DAYS 1-14 OF 3 WEEK CYCLE
     Dates: start: 20130620, end: 20130706
  10. XELODA [Suspect]
     Active Substance: CAPECITABINE
     Indication: COLORECTAL CANCER METASTATIC
     Dosage: ON DAY 1-4 OF 3 WEEK CYCLE?ALSO RECEIVED AT DOSE OF 2600 MG FROM 30-MAY-2013 TO 01-JUN-2013.
     Route: 048
     Dates: start: 20130530, end: 20130627
  11. BISOPROLOL [Concomitant]
     Active Substance: BISOPROLOL
     Indication: HYPERTENSION
     Route: 048
  12. OXALIPLATIN. [Suspect]
     Active Substance: OXALIPLATIN
     Dosage: DAILY DOSE: 167.7 MG MILLIGRAM(S) EVERY 3 WEEK
     Dates: start: 20130620
  13. IRON [Concomitant]
     Active Substance: IRON
     Indication: IRON DEFICIENCY
     Route: 048
  14. FLUOROURACIL. [Suspect]
     Active Substance: FLUOROURACIL
  15. DIOVAN [Concomitant]
     Active Substance: VALSARTAN
     Indication: HYPERTENSION
     Route: 048
  16. XELODA [Suspect]
     Active Substance: CAPECITABINE
     Dosage: 2600, 1300 MG DOSE
     Route: 048
     Dates: start: 20130530, end: 20130627
  17. FLUOROURACIL. [Suspect]
     Active Substance: FLUOROURACIL
     Indication: COLORECTAL CANCER METASTATIC
     Dosage: ALSO RECEIVED AT DOSE OF 161.25 MG FROM 16-MAY-2013 TO 16-MAY-2013
     Route: 041
     Dates: start: 20130502, end: 20130504
  18. OXALIPLATIN. [Suspect]
     Active Substance: OXALIPLATIN
     Indication: COLORECTAL CANCER METASTATIC
     Dosage: ALSO RECEIVED AT DOSE OF 146.2-?167.7 MG FROM 30-MAY-2013 TO 20-JUN-2013
     Route: 042
     Dates: start: 20130502, end: 20130616
  19. AVASTIN [Suspect]
     Active Substance: BEVACIZUMAB
     Indication: PRODUCT USED FOR UNKNOWN INDICATION
     Dosage: DAILY DOSE: 502.5 MG EVERY 3 WEEK?ALSO RECEIVED AT DOSE OF 335 MG ON 02-MAY-2013
     Route: 042
     Dates: start: 20130502
  20. HEPARIN [Concomitant]
     Active Substance: HEPARIN SODIUM
     Indication: THROMBOSIS PROPHYLAXIS
     Route: 065
     Dates: start: 201307, end: 201307

REACTIONS (5)
  - Diarrhoea [Recovered/Resolved]
  - Renal failure [Recovered/Resolved]
  - Paraesthesia [Not Recovered/Not Resolved]
  - Vomiting [Recovered/Resolved]
  - Dehydration [Recovered/Resolved]

NARRATIVE: CASE EVENT DATE: 20130504
